FAERS Safety Report 6323624-3 (Version None)
Quarter: 2009Q3

REPORT INFORMATION
  Report Type: 
  Country: None (occurrence: None)
  Receive Date: 20090824
  Receipt Date: 20090610
  Transmission Date: 20100115
  Serious: No
  Sender: FDA-Public Use
  Company Number: US-ABBOTT-09P-163-0579047-00

PATIENT
  Sex: Female
  Weight: 80.812 kg

DRUGS (8)
  1. NIASPAN [Suspect]
     Indication: BLOOD CHOLESTEROL INCREASED
     Dates: start: 20090529
  2. NIASPAN [Suspect]
  3. ZETIA [Concomitant]
     Indication: BLOOD CHOLESTEROL INCREASED
     Dates: start: 20090529
  4. LIPITOR [Concomitant]
     Indication: BLOOD CHOLESTEROL INCREASED
     Dates: start: 20090529
  5. ATENOLOL [Concomitant]
     Indication: HYPERTENSION
  6. ACTONEL [Concomitant]
     Indication: DRUG USE FOR UNKNOWN INDICATION
  7. OTHER UNNAMED MEDICATIONS [Concomitant]
     Indication: DRUG USE FOR UNKNOWN INDICATION
  8. MECLIZINE [Concomitant]
     Indication: DRUG USE FOR UNKNOWN INDICATION

REACTIONS (5)
  - DIZZINESS [None]
  - FALL [None]
  - FLUSHING [None]
  - NAUSEA [None]
  - VOMITING [None]
